FAERS Safety Report 18725100 (Version 1)
Quarter: 2021Q1

REPORT INFORMATION
  Report Type: Spontaneous
  Country: CN (occurrence: CN)
  Receive Date: 20210111
  Receipt Date: 20210111
  Transmission Date: 20210419
  Serious: Yes (Hospitalization, Other)
  Sender: FDA-Public Use
  Company Number: CN-BAYER-2021-015429

PATIENT
  Sex: Female

DRUGS (3)
  1. GLUCOBAY [Suspect]
     Active Substance: ACARBOSE
     Indication: DIABETES MELLITUS
     Dosage: 100 MG, TID
     Route: 048
     Dates: start: 20190319, end: 20201111
  2. PIOGLITAZONE HYDROCHLORIDE. [Concomitant]
     Active Substance: PIOGLITAZONE HYDROCHLORIDE
     Indication: DIABETES MELLITUS
     Dosage: 30 MG, QD
     Route: 048
  3. GLIMEPIRIDE. [Interacting]
     Active Substance: GLIMEPIRIDE
     Indication: DIABETES MELLITUS
     Dosage: 2 MG, TID
     Route: 048
     Dates: start: 20190319, end: 20201111

REACTIONS (6)
  - Urinary incontinence [None]
  - Drug interaction [None]
  - Unresponsive to stimuli [None]
  - Altered state of consciousness [None]
  - Anal incontinence [None]
  - Blood glucose decreased [Recovered/Resolved]

NARRATIVE: CASE EVENT DATE: 20201111
